FAERS Safety Report 21751170 (Version 1)
Quarter: 2022Q4

REPORT INFORMATION
  Report Type: Spontaneous
  Country: DK (occurrence: DK)
  Receive Date: 20221220
  Receipt Date: 20221220
  Transmission Date: 20230112
  Serious: Yes (Death, Life-Threatening, Hospitalization)
  Sender: FDA-Public Use
  Company Number: None

PATIENT
  Age: 73 Year
  Sex: Female

DRUGS (5)
  1. STELARA [Suspect]
     Active Substance: USTEKINUMAB
     Indication: Psoriasis
     Dosage: STRENGTH: 45MG
     Route: 065
     Dates: start: 202209, end: 20221117
  2. STELARA [Suspect]
     Active Substance: USTEKINUMAB
     Dosage: DOSAGE AND STRENGTH: UNKNOWN
     Route: 065
     Dates: start: 201910, end: 20220616
  3. BRODALUMAB [Suspect]
     Active Substance: BRODALUMAB
     Indication: Psoriasis
     Dosage: DOSAGE: START DOSE 210MG ONCE A WEEK FOR 3 WEEKS, DECREASED TO 210MG EVERY 2 WEEKSSTRENGTH: 210 MG
     Route: 065
     Dates: start: 20220616, end: 202209
  4. AMOXICILLIN [Concomitant]
     Active Substance: AMOXICILLIN
     Indication: Pneumonia
     Route: 065
     Dates: start: 20221115
  5. CLARITHROMYCIN [Concomitant]
     Active Substance: CLARITHROMYCIN
     Indication: Pneumonia
     Route: 065
     Dates: start: 20221115

REACTIONS (6)
  - Cough [Fatal]
  - Dyspnoea [Fatal]
  - Multiple organ dysfunction syndrome [Fatal]
  - Sepsis [Fatal]
  - Palpitations [Fatal]
  - Pneumonia [Fatal]

NARRATIVE: CASE EVENT DATE: 20221101
